FAERS Safety Report 5756338-9 (Version None)
Quarter: 2008Q2

REPORT INFORMATION
  Report Type: 
  Country: None (occurrence: None)
  Receive Date: 20080528
  Receipt Date: 20080528
  Transmission Date: 20081010
  Serious: Yes (Other)
  Sender: FDA-Public Use
  Company Number: None

PATIENT
  Age: 43 Year
  Sex: Female
  Weight: 61.6892 kg

DRUGS (1)
  1. LYRICA [Suspect]
     Indication: NEURALGIA
     Dosage: TWO DAILY PO
     Route: 048
     Dates: start: 20080520, end: 20080526

REACTIONS (4)
  - CONTUSION [None]
  - COORDINATION ABNORMAL [None]
  - DIZZINESS [None]
  - NERVOUS SYSTEM DISORDER [None]
